FAERS Safety Report 14106636 (Version 1)
Quarter: 2017Q4

REPORT INFORMATION
  Report Type: Spontaneous
  Country: US (occurrence: US)
  Receive Date: 20171019
  Receipt Date: 20171019
  Transmission Date: 20180321
  Serious: No
  Sender: FDA-Public Use
  Company Number: US-PFIZER INC-2017450304

PATIENT
  Age: 86 Year
  Sex: Female
  Weight: 48.99 kg

DRUGS (17)
  1. ADVIL ALLERGY AND CONGESTION RELIEF [Suspect]
     Active Substance: CHLORPHENIRAMINE MALEATE\IBUPROFEN\PHENYLEPHRINE HYDROCHLORIDE
     Indication: NASAL CONGESTION
     Dosage: ONE TABLET EVERY FOUR HOURS
     Dates: start: 20171015
  2. OXYBUTYNIN. [Concomitant]
     Active Substance: OXYBUTYNIN CHLORIDE
     Dosage: 2.5 MG, 2X/DAY (5MG TABLET CUT IN HALF, 2.5MG ONE TIME AND LATER TAKE OTHER 2.5MG)
  3. ASPIRIN CALCIUM [Concomitant]
     Active Substance: ASPIRIN CALCIUM
     Indication: DEPRESSION
  4. EVISTA [Concomitant]
     Active Substance: RALOXIFENE HYDROCHLORIDE
     Indication: BONE DISORDER
     Dosage: 60MG ONE TABLET EVERY DAY
  5. ASPIRIN CALCIUM [Concomitant]
     Active Substance: ASPIRIN CALCIUM
     Indication: ANXIETY
     Dosage: 81 MG, 1X/DAY
  6. METAMUCIL [Concomitant]
     Active Substance: PLANTAGO SEED
     Indication: SUPPLEMENTATION THERAPY
     Dosage: 1.7 G ONE CAPSULE A DAY
  7. ZOLOFT [Concomitant]
     Active Substance: SERTRALINE HYDROCHLORIDE
     Indication: ANXIETY
     Dosage: 100 MG, UNK
  8. ADVIL ALLERGY AND CONGESTION RELIEF [Suspect]
     Active Substance: CHLORPHENIRAMINE MALEATE\IBUPROFEN\PHENYLEPHRINE HYDROCHLORIDE
     Indication: HEADACHE
  9. ADVIL ALLERGY AND CONGESTION RELIEF [Suspect]
     Active Substance: CHLORPHENIRAMINE MALEATE\IBUPROFEN\PHENYLEPHRINE HYDROCHLORIDE
     Indication: UPPER RESPIRATORY TRACT CONGESTION
  10. CIPRO [Concomitant]
     Active Substance: CIPROFLOXACIN HYDROCHLORIDE
     Indication: ANXIETY
     Dosage: 500 MG, 1X/DAY
  11. KLONOPIN [Concomitant]
     Active Substance: CLONAZEPAM
     Indication: ANXIETY
     Dosage: 1 MG, 1X/DAY
  12. ULTRAM [Concomitant]
     Active Substance: TRAMADOL HYDROCHLORIDE
     Indication: PAIN
     Dosage: 50 MG, AS NEEDED
  13. ADVIL ALLERGY AND CONGESTION RELIEF [Suspect]
     Active Substance: CHLORPHENIRAMINE MALEATE\IBUPROFEN\PHENYLEPHRINE HYDROCHLORIDE
     Indication: EAR CONGESTION
  14. COLACE [Concomitant]
     Active Substance: DOCUSATE SODIUM
     Indication: CONSTIPATION
     Dosage: 100 MG ONE CAPSULE TWO TIMES A DAY
     Dates: start: 201709
  15. ZOLOFT [Concomitant]
     Active Substance: SERTRALINE HYDROCHLORIDE
     Indication: DEPRESSION
     Dosage: 150MG 1.5 TABLET DAILY
     Route: 048
  16. CIPRO [Concomitant]
     Active Substance: CIPROFLOXACIN HYDROCHLORIDE
     Indication: DEPRESSION
  17. KLONOPIN [Concomitant]
     Active Substance: CLONAZEPAM
     Indication: DEPRESSION

REACTIONS (1)
  - Drug ineffective [Not Recovered/Not Resolved]

NARRATIVE: CASE EVENT DATE: 20171015
